FAERS Safety Report 5273593-2 (Version None)
Quarter: 2007Q1

REPORT INFORMATION
  Report Type: 
  Country: None (occurrence: None)
  Receive Date: 20070320
  Receipt Date: 20070305
  Transmission Date: 20070707
  Serious: Yes (Death)
  Sender: FDA-Public Use
  Company Number: 238020

PATIENT
  Age: 73 Year
  Sex: Male

DRUGS (7)
  1. AVASTIN [Suspect]
     Indication: COLON CANCER
     Dosage: 580 MG, Q3W, INTRAVENOUS
     Route: 042
     Dates: start: 20051212, end: 20061023
  2. OXALIPLATIN [Suspect]
     Indication: COLON CANCER
     Dosage: 85 MG/M2, Q2W, INTRAVENOUS
     Route: 042
     Dates: start: 20051212, end: 20060619
  3. FLUOROURACIL [Suspect]
     Indication: COLON CANCER
     Dosage: 728 MG, Q2W, INTRAVENOUS
     Route: 042
     Dates: start: 20051212, end: 20060619
  4. MAGNESIUM HYDROXIDE (MAGNESIUM HYDROXIDE) [Concomitant]
  5. AMITRIPTYLINE HCL [Concomitant]
  6. GABAPENTIN [Concomitant]
  7. CALCIUM POLYCARBOPHIL (CALCIUM POLYCARBOPHIL) [Concomitant]

REACTIONS (1)
  - DEATH [None]
